FAERS Safety Report 11190379 (Version 1)
Quarter: 2015Q2

REPORT INFORMATION
  Report Type: Spontaneous
  Country: US (occurrence: US)
  Receive Date: 20150615
  Receipt Date: 20150615
  Transmission Date: 20150821
  Serious: No
  Sender: FDA-Public Use
  Company Number: US-PFIZER INC-2015194423

PATIENT

DRUGS (1)
  1. GENOTROPIN [Suspect]
     Active Substance: SOMATROPIN
     Indication: DWARFISM
     Dosage: UNK UNK, DAILY
     Route: 058
     Dates: start: 20150125

REACTIONS (4)
  - Vomiting [Recovering/Resolving]
  - Weight increased [Recovering/Resolving]
  - Contusion [Recovering/Resolving]
  - Skin disorder [Recovering/Resolving]
